FAERS Safety Report 20430525 (Version 1)
Quarter: 2022Q1

REPORT INFORMATION
  Report Type: Report from Study
  Country: FR (occurrence: FR)
  Receive Date: 20220204
  Receipt Date: 20220204
  Transmission Date: 20220423
  Serious: Yes (Hospitalization)
  Sender: FDA-Public Use
  Company Number: FR-SERVIER-S20009878

PATIENT

DRUGS (9)
  1. ONCASPAR [Suspect]
     Active Substance: PEGASPARGASE
     Indication: Acute lymphocytic leukaemia
     Dosage: 1625 IU, QD (D4)
     Route: 042
     Dates: start: 20200717, end: 20200717
  2. TN UNSPECIFIED [Concomitant]
     Indication: Acute lymphocytic leukaemia
     Dosage: 1 MG, (D1, D8, D15)
     Route: 042
     Dates: start: 20200715, end: 20200719
  3. TN UNSPECIFIED [Concomitant]
     Indication: Acute lymphocytic leukaemia
     Dosage: 16.4 MG, (D1 TO D8)
     Route: 042
     Dates: start: 20200715, end: 20200721
  4. TN UNSPECIFIED [Concomitant]
     Dosage: 15.6 MG, (D15)
     Route: 042
     Dates: start: 20200729, end: 20200729
  5. TN UNSPECIFIED [Concomitant]
     Indication: Acute lymphocytic leukaemia
     Dosage: 15.6 MG, (D15)
     Route: 042
     Dates: start: 20200729
  6. TN UNSPECIFIED [Concomitant]
     Indication: Acute lymphocytic leukaemia
     Dosage: 15 MG, (D4)
     Route: 037
     Dates: start: 20200717, end: 20200717
  7. TN UNSPECIFIED [Concomitant]
     Indication: Acute lymphocytic leukaemia
     Dosage: 15 MG, (D4)
     Route: 037
     Dates: start: 20200717, end: 20200717
  8. TN UNSPECIFIED [Concomitant]
     Indication: Acute lymphocytic leukaemia
     Dosage: 30 MG, (D4)
     Route: 037
     Dates: start: 20200717, end: 20200717
  9. TN UNSPECIFIED [Concomitant]
     Indication: Acute lymphocytic leukaemia
     Dosage: UNK, (D15 TO D21)
     Route: 048
     Dates: start: 20200729, end: 20200804

REACTIONS (1)
  - Herpes zoster [Recovered/Resolved]

NARRATIVE: CASE EVENT DATE: 20200815
